FAERS Safety Report 9582264 (Version 1)
Quarter: 2013Q4

REPORT INFORMATION
  Report Type: Spontaneous
  Country: US (occurrence: US)
  Receive Date: 20131002
  Receipt Date: 20131002
  Transmission Date: 20140711
  Serious: No
  Sender: FDA-Public Use
  Company Number: US-AMGEN-USASP2013039523

PATIENT
  Age: 68 Year
  Sex: Female
  Weight: 131.52 kg

DRUGS (8)
  1. ENBREL [Suspect]
     Indication: PRODUCT USED FOR UNKNOWN INDICATION
     Dosage: 50 MG, QWK
     Route: 058
  2. BENICAR [Concomitant]
     Dosage: 20 MG, UNK
  3. PREDNISONE [Concomitant]
     Dosage: 1 MG, UNK
  4. SULFASALAZIN [Concomitant]
     Dosage: 500 MG, UNK
  5. DILTIAZEM [Concomitant]
     Dosage: 120 MG/24
  6. ACYCLOVIR                          /00587301/ [Concomitant]
     Dosage: 200 MG, UNK
  7. OXYCODONE W/APAP [Concomitant]
     Dosage: 2.5-325
  8. GABAPENTIN [Concomitant]
     Dosage: 100 MG, UNK

REACTIONS (1)
  - Herpes zoster [Unknown]
